FAERS Safety Report 11520243 (Version 2)
Quarter: 2015Q3

REPORT INFORMATION
  Report Type: Spontaneous
  Country: US (occurrence: US)
  Receive Date: 20150918
  Receipt Date: 20150922
  Transmission Date: 20151125
  Serious: Yes (Life-Threatening)
  Sender: FDA-Public Use
  Company Number: CHPA2015US010789

PATIENT
  Age: 68 Year
  Sex: Female

DRUGS (1)
  1. VOLTAREN [Suspect]
     Active Substance: DICLOFENAC SODIUM
     Indication: ARTHRITIS
     Dosage: SIZE OF 50 CENT PIECE, BID
     Route: 061
     Dates: start: 201504, end: 20150914

REACTIONS (17)
  - Dizziness [Recovering/Resolving]
  - Influenza like illness [Recovering/Resolving]
  - Skin reaction [Recovered/Resolved]
  - Arthralgia [Not Recovered/Not Resolved]
  - Lacrimation increased [Recovering/Resolving]
  - Inappropriate schedule of drug administration [Unknown]
  - Rhinorrhoea [Recovering/Resolving]
  - Pruritus [Recovered/Resolved]
  - Hyperhidrosis [Recovering/Resolving]
  - Weight increased [Not Recovered/Not Resolved]
  - Wrong technique in product usage process [Unknown]
  - Concomitant disease aggravated [Recovering/Resolving]
  - Joint swelling [Not Recovered/Not Resolved]
  - Peripheral swelling [Not Recovered/Not Resolved]
  - Fatigue [Not Recovered/Not Resolved]
  - Rash [Recovered/Resolved]
  - Drug administered at inappropriate site [Unknown]

NARRATIVE: CASE EVENT DATE: 2015
